FAERS Safety Report 7290735-8 (Version None)
Quarter: 2011Q1

REPORT INFORMATION
  Report Type: 
  Country: None (occurrence: None)
  Receive Date: 20110214
  Receipt Date: 20110208
  Transmission Date: 20110831
  Serious: Yes (Hospitalization, Other)
  Sender: FDA-Public Use
  Company Number: JP-JNJFOC-20100807823

PATIENT
  Sex: Male

DRUGS (13)
  1. SELENICA-R [Concomitant]
     Indication: EPILEPSY
     Route: 048
  2. TOPIRAMATE [Suspect]
     Route: 048
  3. TOPIRAMATE [Suspect]
     Route: 048
  4. TEGRETOL [Suspect]
     Indication: EPILEPSY
     Route: 065
  5. SELENICA-R [Concomitant]
     Route: 048
  6. SELENICA-R [Concomitant]
     Route: 048
  7. TOPIRAMATE [Suspect]
     Route: 048
  8. SELENICA-R [Concomitant]
     Route: 048
  9. TOPIRAMATE [Suspect]
     Indication: PARTIAL SEIZURES
     Route: 048
  10. TOPIRAMATE [Suspect]
     Route: 048
  11. TOPIRAMATE [Suspect]
     Route: 048
  12. TOPIRAMATE [Suspect]
     Route: 048
  13. TOPIRAMATE [Suspect]
     Route: 048

REACTIONS (4)
  - GAMMA-GLUTAMYLTRANSFERASE INCREASED [None]
  - SYSTEMIC LUPUS ERYTHEMATOSUS [None]
  - PLATELET COUNT DECREASED [None]
  - WHITE BLOOD CELL COUNT DECREASED [None]
